FAERS Safety Report 7302855-X (Version None)
Quarter: 2011Q1

REPORT INFORMATION
  Report Type: 
  Country: None (occurrence: None)
  Receive Date: 20110218
  Receipt Date: 20110217
  Transmission Date: 20110831
  Serious: Yes (Other)
  Sender: FDA-Public Use
  Company Number: AT-ABBOTT-11P-009-0706008-00

PATIENT
  Age: 33 Year
  Sex: Male

DRUGS (7)
  1. MIRTAZAPINE [Concomitant]
     Indication: PRODUCT USED FOR UNKNOWN INDICATION
     Dates: start: 20101122, end: 20101213
  2. BROMAZEPAM [Concomitant]
     Indication: PRODUCT USED FOR UNKNOWN INDICATION
     Dates: start: 20101124, end: 20101222
  3. EUTHYROX [Concomitant]
     Indication: PRODUCT USED FOR UNKNOWN INDICATION
     Dates: start: 20101207
  4. DEPAKENE [Suspect]
     Indication: PRODUCT USED FOR UNKNOWN INDICATION
     Route: 048
     Dates: start: 20101206, end: 20101206
  5. DEPAKENE [Suspect]
     Route: 048
     Dates: start: 20101207, end: 20101207
  6. DEPAKENE [Suspect]
     Route: 048
     Dates: start: 20101208
  7. ZIPRASIDONE [Concomitant]
     Indication: PRODUCT USED FOR UNKNOWN INDICATION
     Dates: start: 20100808

REACTIONS (2)
  - TRANSAMINASES INCREASED [None]
  - HEPATOCELLULAR INJURY [None]
